FAERS Safety Report 11872430 (Version 1)
Quarter: 2015Q4

REPORT INFORMATION
  Report Type: Spontaneous
  Country: US (occurrence: None)
  Receive Date: 20151224
  Receipt Date: 20151224
  Transmission Date: 20160305
  Serious: Yes (Hospitalization, Other)
  Sender: FDA-Public Use
  Company Number: None

PATIENT
  Age: 45 Year
  Sex: Female
  Weight: 120 kg

DRUGS (1)
  1. AUBAGIO [Suspect]
     Active Substance: TERIFLUNOMIDE
     Indication: MULTIPLE SCLEROSIS
     Route: 048
     Dates: start: 20151008, end: 20151110

REACTIONS (7)
  - Malaise [None]
  - Hypophagia [None]
  - Memory impairment [None]
  - Diarrhoea [None]
  - Catatonia [None]
  - Vomiting [None]
  - Weight decreased [None]

NARRATIVE: CASE EVENT DATE: 20151110
